FAERS Safety Report 21619742 (Version 2)
Quarter: 2022Q4

REPORT INFORMATION
  Report Type: Spontaneous
  Country: US (occurrence: US)
  Receive Date: 20221121
  Receipt Date: 20221123
  Transmission Date: 20230112
  Serious: No
  Sender: FDA-Public Use
  Company Number: US-002147023-NVSC2022US261044

PATIENT
  Sex: Male

DRUGS (3)
  1. MEKINIST [Suspect]
     Active Substance: TRAMETINIB DIMETHYL SULFOXIDE
     Indication: Thyroid cancer
     Dosage: 1.5 MG, QD
     Route: 048
     Dates: start: 202211
  2. TAFINLAR [Suspect]
     Active Substance: DABRAFENIB MESYLATE
     Indication: Thyroid cancer
     Dosage: 150 MG, BID
     Route: 048
     Dates: start: 202211
  3. THYROGEN [Concomitant]
     Active Substance: THYROTROPIN ALFA
     Indication: Product used for unknown indication
     Dosage: 0.9 MG (ONCE A DAY FOR 2 DAYS PRIOR TO SCANNING AND ONE WEEK LATER, ONCE A DAY FOR 2 DAYS PRIOR TO T
     Route: 030

REACTIONS (1)
  - Rash [Recovered/Resolved]
